FAERS Safety Report 13582921 (Version 1)
Quarter: 2017Q2

REPORT INFORMATION
  Report Type: Report from Study
  Country: None (occurrence: JP)
  Receive Date: 20170525
  Receipt Date: 20170525
  Transmission Date: 20170830
  Serious: Yes (Other)
  Sender: FDA-Public Use
  Company Number: JP-ABBVIE-17P-087-1837825-00

PATIENT
  Sex: Female

DRUGS (1)
  1. VIEKIRAX [Suspect]
     Active Substance: OMBITASVIR\PARITAPREVIR\RITONAVIR
     Indication: HEPATITIS C
     Route: 048
     Dates: start: 20161211

REACTIONS (7)
  - Retinal haemorrhage [Unknown]
  - Vomiting [Unknown]
  - Pruritus generalised [Unknown]
  - Cataract [Unknown]
  - Dysgeusia [Unknown]
  - Decreased appetite [Unknown]
  - Scar [Recovering/Resolving]
